FAERS Safety Report 16751401 (Version 4)
Quarter: 2019Q4

REPORT INFORMATION
  Report Type: Spontaneous
  Country: US (occurrence: US)
  Receive Date: 20190828
  Receipt Date: 20191021
  Transmission Date: 20200122
  Serious: Yes (Hospitalization)
  Sender: FDA-Public Use
  Company Number: US-VERTEX PHARMACEUTICALS-2019-008040

PATIENT
  Age: 18 Year
  Sex: Male

DRUGS (43)
  1. SYMDEKO [Suspect]
     Active Substance: IVACAFTOR\TEZACAFTOR
     Indication: CYSTIC FIBROSIS
     Dosage: 100MG TEZACAFTOR/150MG IVACAFTOR AM; 150MG IVACAFTOR PM
     Route: 048
  2. HUMALOG [Concomitant]
     Active Substance: INSULIN LISPRO
     Dosage: 15 UNITS, QD
     Route: 058
  3. CONCERTA [Concomitant]
     Active Substance: METHYLPHENIDATE HYDROCHLORIDE
     Dosage: 26MG TABLETS,1 DOSAGE FORM, QAM
     Route: 048
  4. COLACE [Concomitant]
     Active Substance: DOCUSATE SODIUM
     Dosage: 100 MILLIGRAM, 1 DOSAGE FORM, QD
     Route: 048
  5. ZYRTEC [Concomitant]
     Active Substance: CETIRIZINE HYDROCHLORIDE
     Dosage: 10 MG, QHS
     Route: 048
  6. ADVAIR HFA [Concomitant]
     Active Substance: FLUTICASONE PROPIONATE\SALMETEROL XINAFOATE
  7. MORPHINE [Concomitant]
     Active Substance: MORPHINE
     Dosage: 50 MG, BID
     Route: 048
  8. TORADOL [Concomitant]
     Active Substance: KETOROLAC TROMETHAMINE
  9. SYMDEKO [Suspect]
     Active Substance: IVACAFTOR\TEZACAFTOR
     Dosage: 100MG TEZACAFTOR/150MG IVACAFTOR; 150MG IVACAFTOR TWICE A WEEK (MON/THUR) WITH ONLY MORNING DOSE
     Route: 048
     Dates: start: 201909
  10. CIPROFLOXACIN. [Concomitant]
     Active Substance: CIPROFLOXACIN
     Dosage: 750 MILLIGRAM, BID
  11. SODIUM CHLORIDE. [Concomitant]
     Active Substance: SODIUM CHLORIDE
  12. METHYLPHENIDATE. [Concomitant]
     Active Substance: METHYLPHENIDATE
     Dosage: 40 MG, QD
     Route: 048
  13. FLUTICASONE;SALMETEROL [Concomitant]
     Active Substance: FLUTICASONE PROPIONATE\SALMETEROL XINAFOATE
     Dosage: 2 PUFFS, BID
     Route: 055
  14. MELATONIN [Concomitant]
     Active Substance: MELATONIN
     Dosage: 10 MG, QHS
     Route: 048
  15. SINGULAIR [Concomitant]
     Active Substance: MONTELUKAST SODIUM
     Dosage: 10 MG, QPM
     Route: 048
  16. TRAMADOL. [Concomitant]
     Active Substance: TRAMADOL
  17. OXYCODONE [Concomitant]
     Active Substance: OXYCODONE
  18. HYDROCORTISONE ACETATE. [Concomitant]
     Active Substance: HYDROCORTISONE ACETATE
     Dosage: 1 APPLICATION, BID
     Route: 061
  19. PULMOZYME [Concomitant]
     Active Substance: DORNASE ALFA
     Dosage: 2.5 MG, QD
     Route: 055
  20. GABAPENTIN. [Concomitant]
     Active Substance: GABAPENTIN
  21. LANTUS [Concomitant]
     Active Substance: INSULIN GLARGINE
     Dosage: 40 UNITS, BID
     Route: 058
  22. COLISTIN [Concomitant]
     Active Substance: COLISTIN
     Dosage: 150 MG, BID
  23. LEXAPRO [Concomitant]
     Active Substance: ESCITALOPRAM OXALATE
     Dosage: 20 MG, QPM
     Route: 048
  24. ZOLPIDEM [Concomitant]
     Active Substance: ZOLPIDEM TARTRATE
     Indication: INSOMNIA
     Dosage: 5 MG, QHS, PRN
  25. CELECOXIB. [Concomitant]
     Active Substance: CELECOXIB
     Dosage: 100 MG, BID
  26. GLUCOTAB [Concomitant]
     Dosage: 2 DOSAGE FORM, PRN
     Route: 048
  27. SEROQUEL [Concomitant]
     Active Substance: QUETIAPINE FUMARATE
     Dosage: 300 MG, QHS
     Route: 048
  28. VITAMIN D3 [Concomitant]
     Active Substance: CHOLECALCIFEROL
     Dosage: 2 DOSAGE FORM, QPM
  29. FLUTICASONE. [Concomitant]
     Active Substance: FLUTICASONE
     Dosage: 1 SPRAY, BID
     Route: 045
  30. ZANTAC [Concomitant]
     Active Substance: RANITIDINE HYDROCHLORIDE
     Dosage: 150 MG, BID
     Route: 048
  31. FLONASE [Concomitant]
     Active Substance: FLUTICASONE PROPIONATE
  32. LIDOCAINE. [Concomitant]
     Active Substance: LIDOCAINE
  33. DEKA [Concomitant]
  34. INSULIN LISPRO [Concomitant]
     Active Substance: INSULIN LISPRO
     Dosage: 25 UNITS-75 UNITS/ML
     Route: 058
  35. POSACONAZOLE [Concomitant]
     Active Substance: POSACONAZOLE
     Dosage: 300 MG, QD
     Route: 048
  36. TYLENOL [Concomitant]
     Active Substance: ACETAMINOPHEN
  37. MIRALAX [Concomitant]
     Active Substance: POLYETHYLENE GLYCOL 3350
     Indication: CONSTIPATION
  38. CREON [Concomitant]
     Active Substance: PANCRELIPASE AMYLASE\PANCRELIPASE LIPASE\PANCRELIPASE PROTEASE
     Dosage: 24-76-120K
     Route: 048
  39. TOBRAMYCIN. [Concomitant]
     Active Substance: TOBRAMYCIN
     Dosage: NEBULIZER, QD
  40. FLOVENT HFA [Concomitant]
     Active Substance: FLUTICASONE PROPIONATE
     Dosage: 110 MICROGRAM, 2 PUFFS VIA INHALATION, BID
  41. ALBUTEROL [SALBUTAMOL] [Concomitant]
     Active Substance: ALBUTEROL
     Indication: WHEEZING
     Dosage: 2.5 MG, Q4H, PRN
  42. PROVENTIL HFA [Concomitant]
     Active Substance: ALBUTEROL SULFATE
     Indication: WHEEZING
     Dosage: 2 PUFF INHALATION Q4H, PRN
  43. GLUCOSE [Concomitant]
     Active Substance: DEXTROSE
     Dosage: 1 MG, PRN
     Route: 030

REACTIONS (2)
  - Infective pulmonary exacerbation of cystic fibrosis [Recovered/Resolved]
  - Pneumonia [Recovered/Resolved]

NARRATIVE: CASE EVENT DATE: 2019
